FAERS Safety Report 20449887 (Version 3)
Quarter: 2022Q2

REPORT INFORMATION
  Report Type: Spontaneous
  Country: US (occurrence: US)
  Receive Date: 20220209
  Receipt Date: 20220407
  Transmission Date: 20220721
  Serious: No
  Sender: FDA-Public Use
  Company Number: US-SANOFI-00959058

PATIENT
  Age: 26 Year
  Sex: Female

DRUGS (1)
  1. NEXVIAZYME [Suspect]
     Active Substance: AVALGLUCOSIDASE ALFA-NGPT
     Indication: Glycogen storage disease type II
     Dosage: 40 MG/KG, QOW

REACTIONS (3)
  - Hypervolaemia [Recovered/Resolved]
  - Swelling [Recovered/Resolved]
  - Off label use [Unknown]
